FAERS Safety Report 13387859 (Version 7)
Quarter: 2017Q3

REPORT INFORMATION
  Report Type: Report from Study
  Country: US (occurrence: US)
  Receive Date: 20170330
  Receipt Date: 20170904
  Transmission Date: 20171127
  Serious: Yes (Hospitalization)
  Sender: FDA-Public Use
  Company Number: US-PFIZER INC-2017097143

PATIENT
  Age: 45 Year
  Sex: Female

DRUGS (1)
  1. IBRANCE [Suspect]
     Active Substance: PALBOCICLIB
     Indication: BREAST CANCER
     Dosage: 125 MG, 1X/DAY
     Route: 048
     Dates: start: 20170228

REACTIONS (22)
  - Nail disorder [Unknown]
  - Paraesthesia [Unknown]
  - Nausea [Recovered/Resolved]
  - Vomiting [Recovered/Resolved]
  - Neoplasm progression [Unknown]
  - Dysgeusia [Unknown]
  - Alopecia [Not Recovered/Not Resolved]
  - Temperature intolerance [Unknown]
  - Decreased appetite [Unknown]
  - Fatigue [Recovering/Resolving]
  - Glossodynia [Unknown]
  - Blood calcium decreased [Unknown]
  - Back pain [Recovering/Resolving]
  - Drug dose omission [Unknown]
  - Joint swelling [Recovered/Resolved]
  - Blood potassium decreased [Recovered/Resolved]
  - Arthralgia [Recovering/Resolving]
  - Contusion [Not Recovered/Not Resolved]
  - Hair growth abnormal [Not Recovered/Not Resolved]
  - Pain [Unknown]
  - Dehydration [Recovered/Resolved]
  - Headache [Unknown]

NARRATIVE: CASE EVENT DATE: 2017
